FAERS Safety Report 24646486 (Version 1)
Quarter: 2024Q4

REPORT INFORMATION
  Report Type: Spontaneous
  Country: LT (occurrence: LT)
  Receive Date: 20241121
  Receipt Date: 20241121
  Transmission Date: 20250115
  Serious: Yes (Life-Threatening, Other)
  Sender: SANDOZ
  Company Number: LT-SANDOZ-SDZ2024LT096732

PATIENT
  Age: 42 Year

DRUGS (1)
  1. HYRIMOZ [Suspect]
     Active Substance: ADALIMUMAB-ADAZ
     Indication: Product used for unknown indication
     Dosage: UNK(ABOUT 3 YEARS)
     Route: 065

REACTIONS (1)
  - Myocardial infarction [Unknown]
